FAERS Safety Report 13796920 (Version 1)
Quarter: 2017Q3

REPORT INFORMATION
  Report Type: Spontaneous
  Country: US (occurrence: US)
  Receive Date: 20170726
  Receipt Date: 20170726
  Transmission Date: 20171127
  Serious: Yes (Other)
  Sender: FDA-Public Use
  Company Number: US-MYLANLABS-2017M1044420

PATIENT

DRUGS (13)
  1. METHYLPREDNISOLONE. [Suspect]
     Active Substance: METHYLPREDNISOLONE
     Indication: T-CELL LYMPHOMA STAGE IV
     Route: 065
     Dates: start: 201204
  2. CISPLATIN. [Concomitant]
     Active Substance: CISPLATIN
     Indication: T-CELL LYMPHOMA STAGE IV
     Route: 065
     Dates: start: 201204
  3. BEXAROTENE. [Concomitant]
     Active Substance: BEXAROTENE
     Indication: T-CELL LYMPHOMA STAGE IV
     Route: 065
  4. ETOPOSIDE. [Concomitant]
     Active Substance: ETOPOSIDE
     Indication: T-CELL LYMPHOMA STAGE IV
     Dosage: 6 CYCLES
     Route: 065
  5. CYTARABINE. [Concomitant]
     Active Substance: CYTARABINE
     Indication: T-CELL LYMPHOMA STAGE IV
     Route: 065
     Dates: start: 201204
  6. DEXAMETHASONE. [Concomitant]
     Active Substance: DEXAMETHASONE
     Indication: T-CELL LYMPHOMA STAGE IV
     Route: 065
  7. PRALATREXATE [Concomitant]
     Active Substance: PRALATREXATE
     Indication: T-CELL LYMPHOMA STAGE IV
     Route: 065
  8. PREDNISONE. [Suspect]
     Active Substance: PREDNISONE
     Indication: T-CELL LYMPHOMA STAGE IV
     Dosage: 6 CYCLES
     Route: 065
     Dates: end: 201112
  9. CYCLOPHOSPHAMIDE. [Concomitant]
     Active Substance: CYCLOPHOSPHAMIDE
     Indication: T-CELL LYMPHOMA STAGE IV
     Dosage: 6 CYCLES
     Route: 065
     Dates: end: 201112
  10. GEMCITABINE [Concomitant]
     Active Substance: GEMCITABINE\GEMCITABINE HYDROCHLORIDE
     Indication: T-CELL LYMPHOMA STAGE IV
     Route: 065
  11. VINCRISTINE [Concomitant]
     Active Substance: VINCRISTINE
     Indication: T-CELL LYMPHOMA STAGE IV
     Dosage: 6 CYCLES
     Route: 065
     Dates: end: 201112
  12. DOXORUBICIN [Concomitant]
     Active Substance: DOXORUBICIN
     Indication: T-CELL LYMPHOMA STAGE IV
     Dosage: 6 CYCLES
     Route: 065
     Dates: end: 201112
  13. OXALIPLATIN. [Concomitant]
     Active Substance: OXALIPLATIN
     Indication: T-CELL LYMPHOMA STAGE IV
     Route: 065

REACTIONS (1)
  - Symptom masked [Unknown]
